FAERS Safety Report 9641901 (Version 1)
Quarter: 2013Q4

REPORT INFORMATION
  Report Type: Spontaneous
  Country: DK (occurrence: DK)
  Receive Date: 20131023
  Receipt Date: 20131023
  Transmission Date: 20140711
  Serious: Yes (Death, Life-Threatening, Hospitalization)
  Sender: FDA-Public Use
  Company Number: DK-TEVA-438315ISR

PATIENT
  Age: 84 Year
  Sex: Female

DRUGS (11)
  1. ATORVASTATIN [Suspect]
     Indication: HYPERCHOLESTEROLAEMIA
     Dosage: 80 MILLIGRAM DAILY; DOSE: 80 MG, 1 TIME DAILY. STRENGTH: 80 MG
     Route: 048
     Dates: start: 20130810, end: 20130908
  2. CENTYL WITH POTASSIUM CHLORIDE [Concomitant]
     Indication: DIURETIC THERAPY
     Dosage: STRENGTH: 2,5 + 573 MG.
     Route: 048
     Dates: end: 20130914
  3. SPIRON /00006201/ [Concomitant]
     Indication: CARDIAC FAILURE
     Route: 048
     Dates: end: 20130914
  4. CLOPIDOGREL [Concomitant]
     Indication: ACUTE MYOCARDIAL INFARCTION
     Dosage: STRENGTH: 75 MG.
     Route: 048
     Dates: start: 20130810, end: 20130911
  5. DIURAL [Concomitant]
     Indication: DIURETIC THERAPY
     Route: 048
     Dates: start: 20130817, end: 20130914
  6. KALEORID [Concomitant]
     Indication: HYPOKALAEMIA
     Dosage: STRENGTH: 750 MG.
     Route: 048
     Dates: start: 20130817, end: 20130911
  7. HJERTEMAGNYL [Concomitant]
     Indication: ANTICOAGULANT THERAPY
     Route: 048
     Dates: end: 20130911
  8. THYCAPZOL [Concomitant]
     Indication: HYPERTHYROIDISM
     Dosage: STRENGTH: 5 MG.
     Route: 048
     Dates: end: 20130914
  9. IMOCLONE [Concomitant]
     Indication: INSOMNIA
     Dosage: STRENGTH: 7,5 MG.
     Route: 048
     Dates: end: 20130914
  10. PINEX [Concomitant]
     Indication: PAIN
     Dates: end: 20130914
  11. GLYTRIN [Concomitant]
     Indication: ANGINA PECTORIS
     Dosage: STRENGTH: 0,4 MG/DOSE
     Route: 060
     Dates: start: 20130810, end: 20130914

REACTIONS (3)
  - Rhabdomyolysis [Fatal]
  - Renal failure acute [Fatal]
  - Pulmonary congestion [Fatal]
